FAERS Safety Report 21881481 (Version 7)
Quarter: 2023Q2

REPORT INFORMATION
  Report Type: Report from Study
  Country: IE (occurrence: IE)
  Receive Date: 20230119
  Receipt Date: 20230419
  Transmission Date: 20230721
  Serious: Yes (Hospitalization)
  Sender: FDA-Public Use
  Company Number: IE-AstraZeneca-2022A386816

PATIENT
  Age: 376 Day
  Sex: Male

DRUGS (6)
  1. SYNAGIS [Suspect]
     Active Substance: PALIVIZUMAB
     Indication: Ventriculo-peritoneal shunt
     Dosage: 15 MG/KG MONTHLY (AFTER 28 DAYS)?1 IN 1 MONTH
     Route: 030
     Dates: start: 20221020
  2. SYNAGIS [Suspect]
     Active Substance: PALIVIZUMAB
     Dosage: 15 MG/KG MONTHLY (AFTER 28 DAYS)?1 IN 1 MONTH
     Route: 030
     Dates: start: 20230209
  3. SYNAGIS [Suspect]
     Active Substance: PALIVIZUMAB
     Dosage: 15 MG/KG MONTHLY (AFTER 28 DAYS)?1 IN 1 MONTH
     Route: 030
     Dates: start: 20221117
  4. SYNAGIS [Suspect]
     Active Substance: PALIVIZUMAB
     Dosage: 15 MG/KG MONTHLY (AFTER 28 DAYS)
     Route: 030
     Dates: start: 20221215
  5. SYNAGIS [Suspect]
     Active Substance: PALIVIZUMAB
     Dosage: 15 MG/KG MONTHLY (AFTER 28 DAYS)
     Route: 030
  6. IRON [Concomitant]
     Active Substance: IRON
     Indication: Product used for unknown indication
     Dosage: 1 ML DAILY
     Route: 050

REACTIONS (17)
  - Respiratory syncytial virus infection [Unknown]
  - Tachypnoea [Unknown]
  - Oxygen saturation decreased [Unknown]
  - Vomiting [Recovered/Resolved]
  - Lethargy [Recovered/Resolved]
  - Food intolerance [Recovered/Resolved]
  - Gastroenteritis [Recovered/Resolved]
  - Hypophagia [Not Recovered/Not Resolved]
  - Erythema [Recovered/Resolved]
  - Eczema [Recovered/Resolved]
  - Dry skin [Recovered/Resolved]
  - Nasopharyngitis [Recovered/Resolved]
  - Rhinorrhoea [Recovered/Resolved]
  - Cough [Recovered/Resolved]
  - Off label use [Recovered/Resolved]
  - Weight gain poor [Recovered/Resolved]
  - Malaise [Recovered/Resolved]

NARRATIVE: CASE EVENT DATE: 20221215
